FAERS Safety Report 26091198 (Version 1)
Quarter: 2025Q4

REPORT INFORMATION
  Report Type: Spontaneous
  Country: US (occurrence: US)
  Receive Date: 20251126
  Receipt Date: 20251126
  Transmission Date: 20260118
  Serious: Yes (Other)
  Sender: ZYDUS PHARM
  Company Number: US-CADILA HEALTHCARE LIMITED-US-ZYDUS-131096

PATIENT

DRUGS (1)
  1. HYDROXYCHLOROQUINE [Suspect]
     Active Substance: HYDROXYCHLOROQUINE
     Indication: Systemic lupus erythematosus
     Dosage: ALTERNATING DOSES OF 200 MG AND  400 MG DAILY
     Route: 065

REACTIONS (2)
  - Microvascular coronary artery disease [Recovering/Resolving]
  - Heart failure with reduced ejection fraction [Recovering/Resolving]
